FAERS Safety Report 5735324-9 (Version None)
Quarter: 2008Q2

REPORT INFORMATION
  Report Type: 
  Country: None (occurrence: None)
  Receive Date: 20080512
  Receipt Date: 20080430
  Transmission Date: 20081010
  Serious: Yes (Hospitalization)
  Sender: FDA-Public Use
  Company Number: US-BRISTOL-MYERS SQUIBB COMPANY-14134415

PATIENT

DRUGS (3)
  1. KENALOG-40 [Suspect]
     Indication: BACK PAIN
     Dosage: OTHER LOT# 7L30353 AND EXPIRATION DATE 10/2009
     Dates: start: 20080301
  2. NAROPIN [Suspect]
     Dates: start: 20080301
  3. OMNIPAQUE 240 [Suspect]
     Dates: start: 20080301

REACTIONS (1)
  - STAPHYLOCOCCAL INFECTION [None]
